FAERS Safety Report 4555304-9 (Version None)
Quarter: 2004Q4

REPORT INFORMATION
  Report Type: 
  Country: None (occurrence: None)
  Receive Date: 20041227
  Receipt Date: 20040603
  Transmission Date: 20050328
  Serious: Yes (Hospitalization)
  Sender: FDA-Public Use
  Company Number: PRA078658

PATIENT
  Age: 67 Year
  Sex: Male

DRUGS (4)
  1. ARANESP [Suspect]
     Indication: ANAEMIA OF MALIGNANT DISEASE
     Dosage: 300 MCG, 1 IN 3 WEEKS, SC
     Route: 058
     Dates: start: 20040511
  2. CARBOPLATIN [Concomitant]
  3. PACLITAXEL [Concomitant]
  4. LEUPROLIDE ACETATE [Concomitant]

REACTIONS (1)
  - PULMONARY EMBOLISM [None]
